FAERS Safety Report 12737706 (Version 2)
Quarter: 2016Q4

REPORT INFORMATION
  Report Type: Spontaneous
  Country: CH (occurrence: CH)
  Receive Date: 20160913
  Receipt Date: 20161115
  Transmission Date: 20170207
  Serious: Yes (Hospitalization, Other)
  Sender: FDA-Public Use
  Company Number: CH-BAYER-2016-172946

PATIENT
  Sex: Male
  Weight: 117.2 kg

DRUGS (14)
  1. VICTOZA [Concomitant]
     Active Substance: LIRAGLUTIDE
     Indication: DIABETES MELLITUS
  2. MORPHIN [Concomitant]
     Active Substance: MORPHINE
  3. ZESTRIL [Concomitant]
     Active Substance: LISINOPRIL
  4. DAFALGAN [Concomitant]
     Active Substance: ACETAMINOPHEN
  5. ZOLPIDEM [Concomitant]
     Active Substance: ZOLPIDEM\ZOLPIDEM TARTRATE
  6. BICALUTAMIDE. [Concomitant]
     Active Substance: BICALUTAMIDE
     Indication: HORMONE-REFRACTORY PROSTATE CANCER
     Dosage: UNK
     Dates: start: 201505
  7. TARGIN [Concomitant]
     Active Substance: NALOXONE HYDROCHLORIDE\OXYCODONE HYDROCHLORIDE
  8. CO-AMOXI [Concomitant]
     Active Substance: AMOXICILLIN\CLAVULANATE POTASSIUM
     Indication: INFECTION
     Dosage: UNK
     Dates: start: 20160729, end: 20160810
  9. LUCRIN [Concomitant]
     Active Substance: LEUPROLIDE ACETATE
     Indication: HORMONE-REFRACTORY PROSTATE CANCER
     Dosage: UNK
     Dates: start: 20140514
  10. CALCIMAGON-D 3 [Concomitant]
  11. XOFIGO [Suspect]
     Active Substance: RADIUM RA-223 DICHLORIDE
     Indication: HORMONE-REFRACTORY PROSTATE CANCER
     Dosage: UNK
     Route: 042
     Dates: start: 20160401, end: 20160819
  12. JANUVIA [Concomitant]
     Active Substance: SITAGLIPTIN PHOSPHATE
     Indication: DIABETES MELLITUS
  13. ASPIRIN CARDIO [Concomitant]
     Active Substance: ASPIRIN
  14. SPIRICORT [Concomitant]
     Active Substance: PREDNISOLONE

REACTIONS (12)
  - Leukopenia [None]
  - Neuropathy peripheral [None]
  - C-reactive protein increased [None]
  - Pelvic pain [None]
  - Anaemia [None]
  - Atrial fibrillation [Recovered/Resolved]
  - General physical health deterioration [Recovered/Resolved]
  - Vomiting [Recovered/Resolved]
  - Pyrexia [Recovered/Resolved]
  - Chest discomfort [Recovered/Resolved]
  - Hypocalcaemia [None]
  - Diarrhoea [Recovered/Resolved]

NARRATIVE: CASE EVENT DATE: 2016
